FAERS Safety Report 10504176 (Version 1)
Quarter: 2014Q4

REPORT INFORMATION
  Report Type: Spontaneous
  Country: US (occurrence: US)
  Receive Date: 20141008
  Receipt Date: 20141008
  Transmission Date: 20150528
  Serious: No
  Sender: FDA-Public Use
  Company Number: US-BEH-2014041276

PATIENT
  Sex: Female
  Weight: 58 kg

DRUGS (31)
  1. BACLOFEN. [Concomitant]
     Active Substance: BACLOFEN
  2. EPIPEN [Concomitant]
     Active Substance: EPINEPHRINE
  3. LMX [Concomitant]
     Active Substance: LIDOCAINE
  4. VICKS DAYQUIL LIQUICAPS [Concomitant]
  5. MACROBID [Concomitant]
     Active Substance: NITROFURANTOIN\NITROFURANTOIN MONOHYDRATE
  6. VITAMIN D3 [Concomitant]
     Active Substance: CHOLECALCIFEROL
  7. SUDAFED [Concomitant]
     Active Substance: PSEUDOEPHEDRINE HYDROCHLORIDE
  8. XANAX [Concomitant]
     Active Substance: ALPRAZOLAM
  9. SERTRALINE [Concomitant]
     Active Substance: SERTRALINE HYDROCHLORIDE
  10. MIRALAX [Concomitant]
     Active Substance: POLYETHYLENE GLYCOL 3350
  11. ACETAMINOPHEN. [Concomitant]
     Active Substance: ACETAMINOPHEN
  12. SODIUM CHLORIDE. [Concomitant]
     Active Substance: SODIUM CHLORIDE
  13. RESTORIL [Concomitant]
     Active Substance: TEMAZEPAM
  14. IBUPROFEN. [Concomitant]
     Active Substance: IBUPROFEN
  15. VALIUM [Concomitant]
     Active Substance: DIAZEPAM
  16. LIDODERM [Concomitant]
     Active Substance: LIDOCAINE
  17. CYANOCOBALAMIN. [Concomitant]
     Active Substance: CYANOCOBALAMIN
  18. SYNTHROID [Concomitant]
     Active Substance: LEVOTHYROXINE SODIUM
  19. URIBEL [Concomitant]
     Active Substance: HYOSCYAMINE SULFATE\METHENAMINE\METHYLENE BLUE\PHENYL SALICYLATE\SODIUM PHOSPHATE, MONOBASIC, MONOHYDRATE
  20. MELATONIN [Concomitant]
     Active Substance: MELATONIN
  21. ENDOCET [Concomitant]
     Active Substance: ACETAMINOPHEN\OXYCODONE HYDROCHLORIDE
  22. PRIVIGEN [Suspect]
     Active Substance: HUMAN IMMUNOGLOBULIN G
     Indication: IMMUNODEFICIENCY COMMON VARIABLE
     Route: 042
  23. DIPHENHYDRAMINE [Concomitant]
     Active Substance: DIPHENHYDRAMINE
  24. PROGESTERONE. [Concomitant]
     Active Substance: PROGESTERONE
  25. PROMETHAZINE [Concomitant]
     Active Substance: PROMETHAZINE\PROMETHAZINE HYDROCHLORIDE
  26. LIDOCAINE. [Concomitant]
     Active Substance: LIDOCAINE
  27. STRONTIUM [Concomitant]
     Active Substance: STRONTIUM
  28. CLARITHROMYCIN. [Concomitant]
     Active Substance: CLARITHROMYCIN
  29. DILAUDID [Concomitant]
     Active Substance: HYDROMORPHONE HYDROCHLORIDE
  30. PROBIOTIC [Concomitant]
     Active Substance: PROBIOTICS NOS
  31. ESTRACE [Concomitant]
     Active Substance: ESTRADIOL

REACTIONS (1)
  - Sinusitis [Unknown]
